FAERS Safety Report 7829888-9 (Version None)
Quarter: 2011Q4

REPORT INFORMATION
  Report Type: 
  Country: None (occurrence: None)
  Receive Date: 20111021
  Receipt Date: 20111012
  Transmission Date: 20120403
  Serious: Yes (Other)
  Sender: FDA-Public Use
  Company Number: FR-GENZYME-THYM-1002841

PATIENT

DRUGS (3)
  1. THYMOGLOBULIN [Suspect]
     Indication: PRODUCT USED FOR UNKNOWN INDICATION
     Dosage: 0.5 MG, ONCE
     Route: 042
  2. THYMOGLOBULIN [Suspect]
     Dosage: 2 MG, ONCE
     Route: 042
  3. THYMOGLOBULIN [Suspect]
     Dosage: 2.5 MG, ONCE
     Route: 042

REACTIONS (1)
  - CYTOLYTIC HEPATITIS [None]
